FAERS Safety Report 7889963-X (Version None)
Quarter: 2011Q4

REPORT INFORMATION
  Report Type: 
  Country: None (occurrence: None)
  Receive Date: 20111103
  Receipt Date: 20111102
  Transmission Date: 20120403
  Serious: Yes (Death, Hospitalization, Other)
  Sender: FDA-Public Use
  Company Number: BE-AMGEN-BELSP2011038074

PATIENT
  Age: 67 Year
  Sex: Female
  Weight: 65 kg

DRUGS (3)
  1. ACITRETIN [Concomitant]
     Dosage: UNK
     Dates: start: 20090101
  2. NPLATE [Suspect]
     Indication: IDIOPATHIC THROMBOCYTOPENIC PURPURA
     Dosage: 8 MUG/KG, UNK
     Dates: start: 20101201
  3. ISOPRINOSINE [Concomitant]
     Dosage: UNK
     Dates: start: 20100101

REACTIONS (13)
  - GASTROINTESTINAL HAEMORRHAGE [None]
  - THROMBOCYTOPENIA [None]
  - MELAENA [None]
  - DEATH [None]
  - CHRONIC LYMPHOCYTIC LEUKAEMIA [None]
  - GENERAL PHYSICAL HEALTH DETERIORATION [None]
  - HYPOKALAEMIA [None]
  - CAPILLARY LEAK SYNDROME [None]
  - DRUG INEFFECTIVE [None]
  - APLASTIC ANAEMIA [None]
  - DISTRIBUTIVE SHOCK [None]
  - BACTERIAL SEPSIS [None]
  - URINARY TRACT INFECTION BACTERIAL [None]
